FAERS Safety Report 6801883-8 (Version None)
Quarter: 2010Q2

REPORT INFORMATION
  Report Type: 
  Country: None (occurrence: None)
  Receive Date: 20100629
  Receipt Date: 20100628
  Transmission Date: 20101027
  Serious: Yes (Hospitalization, Other)
  Sender: FDA-Public Use
  Company Number: CA-WYE-H15528910

PATIENT
  Sex: Male
  Weight: 62 kg

DRUGS (11)
  1. TEMSIROLIMUS [Suspect]
     Indication: METASTATIC RENAL CELL CARCINOMA
     Route: 042
     Dates: start: 20090521, end: 20100519
  2. TEMSIROLIMUS [Suspect]
     Route: 042
     Dates: start: 20100609
  3. SUMATRIPTAN SUCCINATE (IMITREX) [Concomitant]
     Indication: HEADACHE
     Dosage: NOT PROVIDED
     Route: 065
     Dates: start: 20090808
  4. BUSCOPAN [Concomitant]
     Indication: BLADDER SPASM
     Dosage: NOT PROVIDED
     Route: 065
     Dates: start: 20100516
  5. LORAZEPAM [Concomitant]
     Indication: INSOMNIA
     Dosage: NOT PROVIDED
     Route: 065
     Dates: start: 20100507
  6. OXYBUTYNIN CHLORIDE [Concomitant]
     Indication: BLADDER SPASM
     Dosage: NOT PROVIDED
     Route: 065
     Dates: start: 20100516
  7. ACETAMINOPHEN [Concomitant]
     Indication: BACK PAIN
     Dosage: NOT PROVIDED
     Route: 065
     Dates: start: 20090628
  8. ACETAMINOPHEN [Concomitant]
     Indication: ABDOMINAL PAIN
  9. ACETAMINOPHEN [Concomitant]
     Indication: HEADACHE
  10. PANTOPRAZOLE [Concomitant]
     Indication: GASTROOESOPHAGEAL REFLUX DISEASE
     Dosage: NOT PROVIDED
     Route: 065
     Dates: start: 20090329
  11. PANTOPRAZOLE [Concomitant]
     Indication: ABDOMINAL PAIN

REACTIONS (3)
  - ABDOMINAL PAIN [None]
  - CONSTIPATION [None]
  - DEHYDRATION [None]
